FAERS Safety Report 6895407-7 (Version None)
Quarter: 2010Q3

REPORT INFORMATION
  Report Type: 
  Country: None (occurrence: None)
  Receive Date: 20100802
  Receipt Date: 20100722
  Transmission Date: 20110219
  Serious: Yes (Disabling)
  Sender: FDA-Public Use
  Company Number: JP-PFIZER INC-2010082554

PATIENT
  Age: 63 Year
  Sex: Male

DRUGS (10)
  1. LINCOCIN [Suspect]
     Indication: ACUTE TONSILLITIS
     Dosage: 600 MG, UNK
     Route: 030
     Dates: start: 20100611, end: 20100611
  2. SALICYLAMIDE [Concomitant]
     Indication: ACUTE TONSILLITIS
     Dosage: 3 G, UNK
     Route: 048
     Dates: start: 20100611
  3. MEDICON [Concomitant]
     Indication: ACUTE TONSILLITIS
     Dosage: 90 MG, UNK
     Route: 048
     Dates: start: 20100611
  4. CEFZON [Concomitant]
     Indication: ACUTE TONSILLITIS
     Dosage: 300 MG, UNK
     Route: 048
     Dates: start: 20100611
  5. TANATRIL ^ALGOL^ [Concomitant]
     Dosage: 5 MG, UNK
     Route: 048
  6. ASPIRIN [Concomitant]
     Dosage: 100 MG, UNK
     Route: 048
  7. SITAGLIPTIN PHOSPHATE [Concomitant]
     Dosage: 50 MG, UNK
     Route: 048
  8. HERBESSER ^DELTA^ [Concomitant]
     Dosage: 60 MG, UNK
     Route: 048
  9. PERSANTINE [Concomitant]
     Dosage: 75 MG, UNK
     Route: 048
  10. PRAVASTATIN SODIUM [Concomitant]
     Dosage: 10 MG, UNK
     Route: 048

REACTIONS (1)
  - HYPOAESTHESIA [None]
